FAERS Safety Report 5526852-X (Version None)
Quarter: 2007Q4

REPORT INFORMATION
  Report Type: 
  Country: None (occurrence: None)
  Receive Date: 20071127
  Receipt Date: 20071120
  Transmission Date: 20080405
  Serious: Yes (Hospitalization)
  Sender: FDA-Public Use
  Company Number: FR-ASTRAZENECA-2007CG01641

PATIENT
  Age: 781 Month
  Sex: Male

DRUGS (13)
  1. CRESTOR [Suspect]
     Indication: DYSLIPIDAEMIA
     Route: 048
     Dates: start: 20061128, end: 20070626
  2. CRESTOR [Suspect]
     Route: 048
     Dates: start: 20070626, end: 20071011
  3. ELISOR [Suspect]
     Route: 048
     Dates: end: 20061128
  4. MOPRAL [Concomitant]
     Route: 048
  5. KIVEXA [Concomitant]
     Route: 048
     Dates: end: 20070601
  6. TELZIR [Concomitant]
  7. NORVIR [Concomitant]
  8. LASIX [Concomitant]
  9. XATRAL [Concomitant]
  10. PLAVIX [Concomitant]
  11. SECTRAL [Concomitant]
  12. TANAKAN [Concomitant]
  13. LEXOMIL [Concomitant]

REACTIONS (3)
  - CEREBELLAR ATAXIA [None]
  - CONDITION AGGRAVATED [None]
  - NEURALGIA [None]
